FAERS Safety Report 16444096 (Version 2)
Quarter: 2019Q2

REPORT INFORMATION
  Report Type: Report from Study
  Country: IT (occurrence: IT)
  Receive Date: 20190618
  Receipt Date: 20190621
  Transmission Date: 20190711
  Serious: Yes (Other)
  Sender: FDA-Public Use
  Company Number: IT-ACCORD-133105

PATIENT
  Age: 16 Year
  Sex: Female

DRUGS (2)
  1. DIAZEPAM ITALFARMACO [Concomitant]
     Indication: GENERALISED NON-CONVULSIVE EPILEPSY
     Dosage: STRENGTH 10 MG / 2ML
     Route: 042
  2. LEVETIRACETAM ACCORD [Suspect]
     Active Substance: LEVETIRACETAM
     Indication: GENERALISED NON-CONVULSIVE EPILEPSY
     Dosage: STRENGTH 500 MG
     Route: 048

REACTIONS (6)
  - Depressed mood [Recovering/Resolving]
  - Headache [Recovering/Resolving]
  - Irritability [Recovering/Resolving]
  - Memory impairment [Recovering/Resolving]
  - Mental impairment [Recovering/Resolving]
  - Disturbance in attention [Recovering/Resolving]

NARRATIVE: CASE EVENT DATE: 20190129
